FAERS Safety Report 12628421 (Version 1)
Quarter: 2016Q3

REPORT INFORMATION
  Report Type: Spontaneous
  Country: US (occurrence: None)
  Receive Date: 20160805
  Receipt Date: 20160805
  Transmission Date: 20161109
  Serious: Yes (Other)
  Sender: FDA-Public Use
  Company Number: None

PATIENT
  Age: 58 Year
  Sex: Female
  Weight: 58.06 kg

DRUGS (6)
  1. DAILY VITAMINS ^ONE A DAY^ [Concomitant]
     Active Substance: VITAMINS
  2. PENICILLIN [Concomitant]
     Active Substance: PENICILLIN
  3. OMEPRAZOLE. [Concomitant]
     Active Substance: OMEPRAZOLE
  4. AMOXICILLIN 875MG TAB [Suspect]
     Active Substance: AMOXICILLIN
     Indication: SINUSITIS
     Dosage: 875MG 14 EVERY 12 HRS. ORAL MEDICATION PILLS?
     Route: 048
     Dates: start: 20160721, end: 20160724
  5. AMOXICILLIN 875MG TAB [Suspect]
     Active Substance: AMOXICILLIN
     Indication: EAR INFECTION
     Dosage: 875MG 14 EVERY 12 HRS. ORAL MEDICATION PILLS?
     Route: 048
     Dates: start: 20160721, end: 20160724
  6. AMLODIPINE [Concomitant]
     Active Substance: AMLODIPINE BESYLATE

REACTIONS (2)
  - Sputum discoloured [None]
  - Cough [None]

NARRATIVE: CASE EVENT DATE: 20160724
